FAERS Safety Report 5795480-3 (Version None)
Quarter: 2008Q2

REPORT INFORMATION
  Report Type: 
  Country: None (occurrence: None)
  Receive Date: 20080601
  Receipt Date: 20080121
  Transmission Date: 20081010
  Serious: No
  Sender: FDA-Public Use
  Company Number: US200801004602

PATIENT
  Age: 63 Year
  Sex: Female
  Weight: 96.1 kg

DRUGS (9)
  1. BYETTA [Suspect]
     Indication: TYPE 2 DIABETES MELLITUS
     Dosage: 5 UG, 2/D, SUBCUTANEOUS
     Route: 058
     Dates: start: 20080109
  2. EXENATIDE PEN, DISPOSABLE DEVICE [Concomitant]
  3. GLUCOPHAGE [Concomitant]
  4. AVANDIA [Concomitant]
  5. GINKO BILOBA (GINGKO BILOBA) [Concomitant]
  6. HERBALS NOS W/VITAMINS NOS (HERBAL NOS, VITAMINS NOS) [Concomitant]
  7. ERYTHROMYCIN [Concomitant]
  8. PROGESTERONE [Concomitant]
  9. ASPIRIN [Concomitant]

REACTIONS (3)
  - CONSTIPATION [None]
  - INCORRECT DOSE ADMINISTERED [None]
  - NAUSEA [None]
